FAERS Safety Report 23314265 (Version 2)
Quarter: 2023Q4

REPORT INFORMATION
  Report Type: Spontaneous
  Country: US (occurrence: US)
  Receive Date: 20231219
  Receipt Date: 20231229
  Transmission Date: 20240110
  Serious: No
  Sender: FDA-Public Use
  Company Number: US-BEH-2023166403

PATIENT
  Age: 73 Year
  Sex: Female
  Weight: 71.17 kg

DRUGS (1)
  1. HIZENTRA [Suspect]
     Active Substance: HUMAN IMMUNOGLOBULIN G
     Indication: Immunology test abnormal
     Dosage: 8 GRAM, QW
     Route: 058
     Dates: start: 202310

REACTIONS (5)
  - Cystitis [Unknown]
  - No adverse event [Unknown]
  - Off label use [Unknown]
  - No adverse event [Unknown]
  - Product use issue [Unknown]
